FAERS Safety Report 9188336 (Version 2)
Quarter: 2012Q4

REPORT INFORMATION
  Report Type: 
  Country: US (occurrence: US)
  Receive Date: 20121204
  Receipt Date: 20121211
  Transmission Date: 20130627
  Serious: Yes (Other)
  Sender: FDA-Public Use
  Company Number: US-RB-047327-12

PATIENT
  Age: 81 Year
  Sex: Male

DRUGS (3)
  1. MUCINEX D (GUAIFENESIN) [Suspect]
     Indication: ASTHMA
     Route: 048
  2. MUCINEX D [Suspect]
  3. COUMADIN [Concomitant]
     Indication: PRODUCT USED FOR UNKNOWN INDICATION

REACTIONS (3)
  - Polyuria [Recovered/Resolved]
  - Incorrect drug administration duration [Recovered/Resolved]
  - Off label use [Recovered/Resolved]
